FAERS Safety Report 19189985 (Version 13)
Quarter: 2022Q4

REPORT INFORMATION
  Report Type: Spontaneous
  Country: CA (occurrence: CA)
  Receive Date: 20210428
  Receipt Date: 20221130
  Transmission Date: 20230113
  Serious: Yes (Hospitalization, Other)
  Sender: FDA-Public Use
  Company Number: CA-DRREDDYS-USA/CAN/21/0134915

PATIENT
  Age: 47 Year
  Sex: Female

DRUGS (49)
  1. FLUOXETINE HYDROCHLORIDE [Interacting]
     Active Substance: FLUOXETINE HYDROCHLORIDE
     Indication: Major depression
     Route: 048
  2. FLUOXETINE HYDROCHLORIDE [Interacting]
     Active Substance: FLUOXETINE HYDROCHLORIDE
     Route: 048
  3. FLUOXETINE HYDROCHLORIDE [Interacting]
     Active Substance: FLUOXETINE HYDROCHLORIDE
     Route: 048
  4. FLUOXETINE HYDROCHLORIDE [Interacting]
     Active Substance: FLUOXETINE HYDROCHLORIDE
     Route: 048
  5. FLUOXETINE HYDROCHLORIDE [Interacting]
     Active Substance: FLUOXETINE HYDROCHLORIDE
     Route: 048
  6. FLUOXETINE HYDROCHLORIDE [Interacting]
     Active Substance: FLUOXETINE HYDROCHLORIDE
     Route: 048
  7. FLUOXETINE HYDROCHLORIDE [Interacting]
     Active Substance: FLUOXETINE HYDROCHLORIDE
     Route: 048
  8. FLUOXETINE HYDROCHLORIDE [Interacting]
     Active Substance: FLUOXETINE HYDROCHLORIDE
     Route: 048
  9. GABAPENTIN [Interacting]
     Active Substance: GABAPENTIN
     Indication: Pain
     Route: 048
  10. GABAPENTIN [Interacting]
     Active Substance: GABAPENTIN
     Route: 048
  11. RISPERIDONE [Interacting]
     Active Substance: RISPERIDONE
     Indication: Affective disorder
     Route: 048
  12. DOXEPIN [Interacting]
     Active Substance: DOXEPIN
     Indication: Major depression
     Route: 048
  13. DOXEPIN [Interacting]
     Active Substance: DOXEPIN
     Route: 048
  14. DOXEPIN [Interacting]
     Active Substance: DOXEPIN
     Route: 048
  15. DOXEPIN [Interacting]
     Active Substance: DOXEPIN
     Route: 048
  16. DIVALPROEX SODIUM [Interacting]
     Active Substance: DIVALPROEX SODIUM
     Indication: Affective disorder
     Route: 048
  17. DIVALPROEX SODIUM [Interacting]
     Active Substance: DIVALPROEX SODIUM
     Route: 048
  18. DIVALPROEX SODIUM [Interacting]
     Active Substance: DIVALPROEX SODIUM
     Route: 048
  19. LORAZEPAM [Interacting]
     Active Substance: LORAZEPAM
     Indication: Withdrawal syndrome
     Dosage: 1 TO 2 MG PO 4 TIMES DAILY AS NEEDED
     Route: 048
  20. LORAZEPAM [Interacting]
     Active Substance: LORAZEPAM
     Route: 048
  21. CYCLOBENZAPRINE [Interacting]
     Active Substance: CYCLOBENZAPRINE
     Indication: Pain
     Route: 048
  22. CYCLOBENZAPRINE [Interacting]
     Active Substance: CYCLOBENZAPRINE
     Route: 048
  23. CYCLOBENZAPRINE [Interacting]
     Active Substance: CYCLOBENZAPRINE
     Route: 048
  24. METHADONE HYDROCHLORIDE [Interacting]
     Active Substance: METHADONE HYDROCHLORIDE
     Indication: Drug use disorder
     Route: 048
  25. QUETIAPINE [Interacting]
     Active Substance: QUETIAPINE
     Indication: Major depression
     Dosage: 25 TO 50 MG IMMEDIATE-RELEASE 4 TIMES DAILY AS NEEDED
     Route: 048
  26. QUETIAPINE [Interacting]
     Active Substance: QUETIAPINE
     Dosage: EXTENDED-RELEASE AT BEDTIME
     Route: 048
  27. QUETIAPINE [Interacting]
     Active Substance: QUETIAPINE
     Route: 065
  28. QUETIAPINE [Interacting]
     Active Substance: QUETIAPINE
     Route: 048
  29. DIVALPROEX SODIUM [Suspect]
     Active Substance: DIVALPROEX SODIUM
     Indication: Affective disorder
     Route: 048
  30. DIVALPROEX SODIUM [Suspect]
     Active Substance: DIVALPROEX SODIUM
     Route: 048
  31. ESTRADIOL [Concomitant]
     Active Substance: ESTRADIOL
     Indication: Endometriosis
     Route: 048
  32. ESTRADIOL [Concomitant]
     Active Substance: ESTRADIOL
     Route: 065
  33. NAPROXEN [Concomitant]
     Active Substance: NAPROXEN
     Indication: Pain
     Dosage: BID
     Route: 048
  34. NAPROXEN [Concomitant]
     Active Substance: NAPROXEN
     Route: 065
  35. NAPROXEN [Concomitant]
     Active Substance: NAPROXEN
     Route: 048
  36. NAPROXEN [Concomitant]
     Active Substance: NAPROXEN
     Route: 048
  37. ATENOLOL [Concomitant]
     Active Substance: ATENOLOL
     Indication: Hypertension
     Route: 048
  38. ATENOLOL [Concomitant]
     Active Substance: ATENOLOL
     Route: 065
  39. ATENOLOL [Concomitant]
     Active Substance: ATENOLOL
     Route: 048
  40. ATENOLOL [Concomitant]
     Active Substance: ATENOLOL
     Route: 065
  41. ATENOLOL [Concomitant]
     Active Substance: ATENOLOL
     Route: 048
  42. TIOTROPIUM [Concomitant]
     Active Substance: TIOTROPIUM
     Indication: Chronic obstructive pulmonary disease
     Route: 055
  43. TIOTROPIUM [Concomitant]
     Active Substance: TIOTROPIUM
     Route: 065
  44. FUROSEMIDE [Concomitant]
     Active Substance: FUROSEMIDE
     Indication: Oedema peripheral
     Dosage: ONCE DAILY
     Route: 048
  45. FUROSEMIDE [Concomitant]
     Active Substance: FUROSEMIDE
     Route: 065
  46. FUROSEMIDE [Concomitant]
     Active Substance: FUROSEMIDE
     Route: 048
  47. ALBUTEROL [Concomitant]
     Active Substance: ALBUTEROL
     Indication: Chronic obstructive pulmonary disease
     Dosage: AS REQUIRED
     Route: 055
  48. ALBUTEROL [Concomitant]
     Active Substance: ALBUTEROL
     Route: 065
  49. ALBUTEROL [Concomitant]
     Active Substance: ALBUTEROL

REACTIONS (5)
  - Toxicity to various agents [Recovering/Resolving]
  - Drug interaction [Recovering/Resolving]
  - Drug interaction [Recovering/Resolving]
  - Depressed level of consciousness [Recovering/Resolving]
  - Respiratory depression [Recovering/Resolving]
